FAERS Safety Report 8598509-2 (Version None)
Quarter: 2012Q3

REPORT INFORMATION
  Report Type: 
  Country: None (occurrence: None)
  Receive Date: 20120816
  Receipt Date: 20120806
  Transmission Date: 20120928
  Serious: Yes (Death, Other)
  Sender: FDA-Public Use
  Company Number: FR-EISAI INC-E3810-05786-SPO-FR

PATIENT
  Sex: Male

DRUGS (10)
  1. ABILIFY [Concomitant]
     Route: 065
  2. TRIHEXYPHENIDYL HYDROCHLORIDE [Concomitant]
     Route: 065
  3. AUGMENTIN '500' [Suspect]
     Route: 065
     Dates: start: 20120407
  4. AMLODPINE WITH OLMESARTAN [Concomitant]
     Route: 065
  5. PHENYTOIN SODIUM [Suspect]
     Route: 048
     Dates: start: 20120414
  6. FOSPHENYTOIN SODIUM [Suspect]
     Route: 048
     Dates: start: 20120410
  7. PENTOTHAL [Suspect]
     Route: 065
     Dates: start: 20120410
  8. RABEPRAZOLE SODIUM [Suspect]
     Route: 048
     Dates: start: 20120407, end: 20120417
  9. KEPPRA [Suspect]
     Route: 042
     Dates: start: 20120406
  10. PIPOTIAZINE [Concomitant]
     Route: 065

REACTIONS (6)
  - MULTI-ORGAN FAILURE [None]
  - URINARY TRACT INFECTION PSEUDOMONAL [None]
  - EOSINOPHILIA [None]
  - RASH [None]
  - RENAL FAILURE ACUTE [None]
  - PNEUMONIA ASPIRATION [None]
